FAERS Safety Report 4936042-7 (Version None)
Quarter: 2006Q1

REPORT INFORMATION
  Report Type: 
  Country: None (occurrence: None)
  Receive Date: 20060307
  Receipt Date: 20050914
  Transmission Date: 20060701
  Serious: No
  Sender: FDA-Public Use
  Company Number: US-GLAXOSMITHKLINE-A0574241A

PATIENT
  Age: 80 Year
  Sex: Female

DRUGS (8)
  1. REQUIP [Suspect]
     Indication: RESTLESS LEGS SYNDROME
     Dosage: .25MG THREE TIMES PER DAY
     Route: 048
     Dates: start: 20050910, end: 20050913
  2. TOPROL-XL [Concomitant]
  3. SYNTHROID [Concomitant]
  4. PAXIL [Concomitant]
  5. COZAAR [Concomitant]
  6. DERMADEX [Concomitant]
     Route: 065
  7. NEXIUM [Concomitant]
  8. DETROL [Concomitant]

REACTIONS (3)
  - DRUG ADMINISTRATION ERROR [None]
  - DRUG INEFFECTIVE [None]
  - NAUSEA [None]
